FAERS Safety Report 23595046 (Version 3)
Quarter: 2024Q1

REPORT INFORMATION
  Report Type: Report from Study
  Country: US (occurrence: US)
  Receive Date: 20240305
  Receipt Date: 20240322
  Transmission Date: 20240410
  Serious: Yes (Death, Hospitalization, Other)
  Sender: FDA-Public Use
  Company Number: US-SUN PHARMACEUTICAL INDUSTRIES LTD-2024R1-433391

PATIENT
  Sex: Female

DRUGS (1)
  1. BOSENTAN [Suspect]
     Active Substance: BOSENTAN
     Indication: Chronic obstructive pulmonary disease
     Dosage: 125 MILLIGRAM, BID
     Route: 048

REACTIONS (6)
  - Death [Fatal]
  - Micturition disorder [Unknown]
  - Fatigue [Unknown]
  - Asthenia [Unknown]
  - Swelling [Unknown]
  - Product dose omission issue [Unknown]
